FAERS Safety Report 10282074 (Version 1)
Quarter: 2014Q3

REPORT INFORMATION
  Report Type: Spontaneous
  Country: US (occurrence: US)
  Receive Date: 20140707
  Receipt Date: 20140707
  Transmission Date: 20150326
  Serious: No
  Sender: FDA-Public Use
  Company Number: US-SA-2013SA105035

PATIENT

DRUGS (1)
  1. PRIFTIN [Suspect]
     Active Substance: RIFAPENTINE
     Dosage: ( 6 TABLETS OF 150 MG)
     Route: 048

REACTIONS (1)
  - Extra dose administered [Unknown]
